FAERS Safety Report 4319754-8 (Version None)
Quarter: 2004Q1

REPORT INFORMATION
  Report Type: 
  Country: None (occurrence: None)
  Receive Date: 20040319
  Receipt Date: 20040316
  Transmission Date: 20041129
  Serious: Yes (Other)
  Sender: FDA-Public Use
  Company Number: CA-GLAXOSMITHKLINE-A0503382A

PATIENT
  Age: 16 Year
  Sex: Female

DRUGS (1)
  1. PAXIL [Suspect]
     Route: 048

REACTIONS (5)
  - DEPRESSED MOOD [None]
  - HEADACHE [None]
  - SELF MUTILATION [None]
  - TREMOR [None]
  - VOCAL CORD DISORDER [None]
